FAERS Safety Report 24642245 (Version 1)
Quarter: 2024Q4

REPORT INFORMATION
  Report Type: Report from Study
  Country: US (occurrence: US)
  Receive Date: 20241120
  Receipt Date: 20241120
  Transmission Date: 20250115
  Serious: Yes (Other)
  Sender: ROCHE
  Company Number: US-ROCHE-10000122133

PATIENT

DRUGS (2)
  1. ATEZOLIZUMAB [Suspect]
     Active Substance: ATEZOLIZUMAB
     Indication: Hepatocellular carcinoma
     Route: 065
  2. BEVACIZUMAB [Suspect]
     Active Substance: BEVACIZUMAB
     Indication: Hepatocellular carcinoma
     Route: 065

REACTIONS (13)
  - Protein urine [Unknown]
  - Hepatic function abnormal [Unknown]
  - Decreased appetite [Unknown]
  - Hypertension [Unknown]
  - Fatigue [Unknown]
  - Ascites [Unknown]
  - Oedema [Unknown]
  - Pyrexia [Unknown]
  - Rash [Unknown]
  - Liver injury [Unknown]
  - Interstitial lung disease [Unknown]
  - Oesophageal varices haemorrhage [Unknown]
  - Colitis [Unknown]
